FAERS Safety Report 16785713 (Version 1)
Quarter: 2019Q3

REPORT INFORMATION
  Report Type: Spontaneous
  Country: US (occurrence: US)
  Receive Date: 20190717
  Receipt Date: 20190717
  Transmission Date: 20191005
  Serious: No
  Sender: FDA-Public Use
  Company Number: None

PATIENT
  Age: 78 Year
  Sex: Female
  Weight: 64.86 kg

DRUGS (12)
  1. TURMERIC [Concomitant]
     Active Substance: HERBALS\TURMERIC
  2. VENTOLIN [Concomitant]
     Active Substance: ALBUTEROL SULFATE
  3. VITAMIN B12 [Concomitant]
     Active Substance: CYANOCOBALAMIN
  4. ZAFIRLUKAST. [Concomitant]
     Active Substance: ZAFIRLUKAST
  5. PROBIOTICS [Concomitant]
     Active Substance: PROBIOTICS NOS
  6. LYRICA [Suspect]
     Active Substance: PREGABALIN
     Indication: PROCEDURAL PAIN
     Dosage: ?          QUANTITY:50 MG MILLIGRAM(S);?
     Route: 048
     Dates: start: 20180425, end: 20180425
  7. COQ10 [Concomitant]
     Active Substance: UBIDECARENONE
  8. LIQUID CAL [Concomitant]
  9. LORAZEPAM. [Concomitant]
     Active Substance: LORAZEPAM
  10. AMITRIPTYLINE [Concomitant]
     Active Substance: AMITRIPTYLINE
  11. NEBULIZER [Concomitant]
     Active Substance: DEVICE
  12. ESTROVEN [Concomitant]
     Active Substance: DIETARY SUPPLEMENT

REACTIONS (4)
  - Skin lesion [None]
  - Lip erythema [None]
  - Lip haemorrhage [None]
  - Lip disorder [None]

NARRATIVE: CASE EVENT DATE: 20180425
